FAERS Safety Report 6774677-X (Version None)
Quarter: 2010Q2

REPORT INFORMATION
  Report Type: 
  Country: None (occurrence: None)
  Receive Date: 20100617
  Receipt Date: 20100609
  Transmission Date: 20101027
  Serious: Yes (Other)
  Sender: FDA-Public Use
  Company Number: PT-ROCHE-699980

PATIENT
  Sex: Female
  Weight: 59 kg

DRUGS (12)
  1. BEVACIZUMAB [Suspect]
     Indication: COLORECTAL CANCER
     Dosage: OVER 30-90 MINUTES
     Route: 042
     Dates: start: 20100125, end: 20100308
  2. BEVACIZUMAB [Suspect]
     Route: 042
     Dates: start: 20100329
  3. FLUOROURACIL [Suspect]
     Indication: COLORECTAL CANCER
     Dosage: ON EVERY DAY 01. FOLLOWED BY 2400 MG/M2
     Route: 042
     Dates: start: 20100125
  4. FLUOROURACIL [Suspect]
     Dosage: OVER 46-48 HOURS.
     Route: 042
     Dates: end: 20100308
  5. OXALIPLATIN [Suspect]
     Indication: COLORECTAL CANCER
     Dosage: ON DAY 01 OF EVERY 14 DAYS CYCLE.
     Route: 042
     Dates: start: 20100125, end: 20100308
  6. ACETAMINOPHEN [Concomitant]
     Dates: start: 20100131, end: 20100131
  7. DRILL [Concomitant]
     Dosage: FORM: PILL
     Dates: start: 20100131, end: 20100131
  8. SALBUTAMOL [Concomitant]
     Indication: BRONCHOSPASM
     Dates: start: 20100201, end: 20100203
  9. ALLOPURINOL [Concomitant]
     Dates: start: 20100201
  10. LOPERAMIDE HYDROCHLORIDE [Concomitant]
     Dates: start: 20100301
  11. FOLINIC ACID [Suspect]
     Indication: COLORECTAL CANCER
     Route: 042
     Dates: start: 20100125, end: 20100308
  12. FOLINIC ACID [Suspect]
     Route: 042
     Dates: start: 20100329

REACTIONS (3)
  - BLOOD CREATININE INCREASED [None]
  - DEHYDRATION [None]
  - DIARRHOEA [None]
